FAERS Safety Report 23981491 (Version 1)
Quarter: 2024Q2

REPORT INFORMATION
  Report Type: Spontaneous
  Country: CN (occurrence: CN)
  Receive Date: 20240617
  Receipt Date: 20240617
  Transmission Date: 20240715
  Serious: Yes (Other)
  Sender: FDA-Public Use
  Company Number: CN-PFIZER INC-PV202400078924

PATIENT
  Age: 5 Year
  Sex: Female
  Weight: 18 kg

DRUGS (3)
  1. METHOTREXATE SODIUM [Suspect]
     Active Substance: METHOTREXATE SODIUM
     Indication: Acute lymphocytic leukaemia
     Dosage: 2000 MG, 1X/DAY
     Route: 041
     Dates: start: 20240527, end: 20240527
  2. METHOTREXATE SODIUM [Suspect]
     Active Substance: METHOTREXATE SODIUM
     Dosage: 230 MG, 1X/DAY
     Route: 041
     Dates: start: 20240527, end: 20240527
  3. DEXTROSE [Concomitant]
     Active Substance: DEXTROSE\DEXTROSE MONOHYDRATE
     Indication: Acute lymphocytic leukaemia
     Dosage: 250 ML, 1X/DAY
     Route: 041
     Dates: start: 20240527, end: 20240527

REACTIONS (1)
  - Liver injury [Recovering/Resolving]

NARRATIVE: CASE EVENT DATE: 20240601
